FAERS Safety Report 25739695 (Version 2)
Quarter: 2025Q4

REPORT INFORMATION
  Report Type: Spontaneous
  Country: EU (occurrence: EU)
  Receive Date: 20250829
  Receipt Date: 20251103
  Transmission Date: 20260117
  Serious: Yes (Hospitalization, Other)
  Sender: ABBVIE
  Company Number: EU-ABBVIE-6438099

PATIENT
  Age: 59 Year
  Sex: Female
  Weight: 60 kg

DRUGS (24)
  1. ELAHERE [Suspect]
     Active Substance: MIRVETUXIMAB SORAVTANSINE-GYNX
     Indication: Ovarian cancer
     Dosage: CYCLE 1?370MG/98.7% (5.92MG/AIB W ELAHERE OR 250ML GLUCOSE 5% IV
     Route: 042
     Dates: start: 20250313, end: 20250313
  2. ELAHERE [Suspect]
     Active Substance: MIRVETUXIMAB SORAVTANSINE-GYNX
     Indication: Ovarian cancer
     Dosage: CYCLE 2?370MG/98.7% (5.92MG/AIB W ELAHERE OR 250ML GLUCOSE 5% IV??5 MG/ML INJECTION
     Route: 042
     Dates: start: 20250402, end: 20250402
  3. ELAHERE [Suspect]
     Active Substance: MIRVETUXIMAB SORAVTANSINE-GYNX
     Indication: Ovarian cancer
     Dosage: CYCLE 3?370MG/98.7% (5.92MG/AIB W ELAHERE OR 250ML GLUCOSE 5% IV
     Route: 042
     Dates: start: 20250428, end: 20250428
  4. ELAHERE [Suspect]
     Active Substance: MIRVETUXIMAB SORAVTANSINE-GYNX
     Indication: Ovarian cancer
     Dosage: CYCLE 4?370MG/98.7% (5.92MG/AIB W ELAHERE OR 250ML GLUCOSE 5% IV
     Route: 042
     Dates: start: 20250519, end: 20250519
  5. ELAHERE [Suspect]
     Active Substance: MIRVETUXIMAB SORAVTANSINE-GYNX
     Indication: Ovarian cancer
     Dosage: CYCLE 5 M005558 + M005545?370MG/98.7% (5.92MG/AIB W ELAHERE OR 250ML GLUCOSE 5% IV
     Route: 042
     Dates: start: 20250630, end: 20250630
  6. ELAHERE [Suspect]
     Active Substance: MIRVETUXIMAB SORAVTANSINE-GYNX
     Indication: Ovarian cancer
     Dosage: CYCLE 6?370MG/98.7% (5.92MG/AIB W ELAHERE OR 250ML GLUCOSE 5% IV
     Route: 042
     Dates: start: 20250721, end: 20250721
  7. ELAHERE [Suspect]
     Active Substance: MIRVETUXIMAB SORAVTANSINE-GYNX
     Indication: Ovarian cancer
     Dosage: CYCLE 7?370MG/98.7% (5.92MG/AIB W ELAHERE OR 250ML GLUCOSE 5% IV
     Route: 042
     Dates: start: 20250811, end: 20250811
  8. ELAHERE [Suspect]
     Active Substance: MIRVETUXIMAB SORAVTANSINE-GYNX
     Indication: Ovarian cancer
     Dosage: CYCLE 8?370MG/98.7% (5.92MG/AIB W ELAHERE OR 250ML GLUCOSE 5% IV?FIRST ADMIN DATE 2025
     Route: 042
  9. METOPROLOL [Concomitant]
     Active Substance: METOPROLOL
     Indication: Product used for unknown indication
     Dosage: PER ORAL
     Route: 048
  10. ASPIRIN [Concomitant]
     Active Substance: ASPIRIN
     Indication: Product used for unknown indication
     Route: 048
  11. HYALURONATE SODIUM\TREHALOSE [Concomitant]
     Active Substance: HYALURONATE SODIUM\TREHALOSE
     Indication: Dry eye
     Dosage: EYE DROPS?ON BOTH SIDES IF NECESSARY
  12. HYDROMORPHONE HYDROCHLORIDE [Concomitant]
     Active Substance: HYDROMORPHONE HYDROCHLORIDE
     Indication: Product used for unknown indication
     Dosage: TBL. RECT?1-0-1 IF NECESSARY
  13. XARELTO [Concomitant]
     Active Substance: RIVAROXABAN
     Indication: Product used for unknown indication
     Route: 048
  14. LOVENOX [Concomitant]
     Active Substance: ENOXAPARIN SODIUM
     Indication: Product used for unknown indication
     Dosage: S.C. INJECTION
  15. EUTHYROX [Concomitant]
     Active Substance: LEVOTHYROXINE SODIUM
     Indication: Product used for unknown indication
     Dosage: TABLET P.O?0.5-0-0
     Route: 048
  16. GABAPENTIN [Concomitant]
     Active Substance: GABAPENTIN
     Indication: Product used for unknown indication
     Route: 048
  17. MORPHINE [Concomitant]
     Active Substance: MORPHINE
     Indication: Product used for unknown indication
     Dosage: 1-1-1 ML?SYRUP 5 MG/ML
  18. PANTOPRAZOLE SODIUM [Concomitant]
     Active Substance: PANTOPRAZOLE SODIUM
     Indication: Product used for unknown indication
  19. BENSERAZIDE\LEVODOPA [Concomitant]
     Active Substance: BENSERAZIDE\LEVODOPA
     Indication: Nervous system disorder
     Dosage: 0-0-0-1
  20. DEXAMETHASONE [Concomitant]
     Active Substance: DEXAMETHASONE
     Indication: Product used for unknown indication
     Dosage: DOSAGE: 1 MG/ML EYE DROP IN SINGLE DOSE CONTAINER. TAKE IT ACCORDING TO THE SCHEDULE STARTING 1 D...
  21. Kalioral [Concomitant]
     Indication: Product used for unknown indication
     Dosage: 0-1-0
  22. ATORVASTATIN [Concomitant]
     Active Substance: ATORVASTATIN
     Indication: Product used for unknown indication
     Dosage: 0-0-1
     Route: 048
  23. Sucralan [Concomitant]
     Indication: Product used for unknown indication
     Dosage: 1-1-1
  24. CORTISONE ACETATE [Concomitant]
     Active Substance: CORTISONE ACETATE
     Indication: Product used for unknown indication

REACTIONS (12)
  - Ischaemia [Unknown]
  - Nervous system disorder [Unknown]
  - Cerebellar stroke [Unknown]
  - Keratopathy [Recovered/Resolved]
  - Quadrantanopia [Unknown]
  - Nystagmus [Unknown]
  - Gait disturbance [Unknown]
  - Sicca syndrome [Unknown]
  - Blood pressure decreased [Unknown]
  - Astigmatism [Unknown]
  - Presbyopia [Unknown]
  - Quadrantanopia [Unknown]

NARRATIVE: CASE EVENT DATE: 20250101
